FAERS Safety Report 9287169 (Version 3)
Quarter: 2013Q4

REPORT INFORMATION
  Report Type: Spontaneous
  Country: US (occurrence: US)
  Receive Date: 20130513
  Receipt Date: 20131219
  Transmission Date: 20140711
  Serious: Yes (Hospitalization, Other)
  Sender: FDA-Public Use
  Company Number: US-009507513-1305USA005497

PATIENT
  Sex: 0
  Weight: 63.49 kg

DRUGS (1)
  1. NUVARING [Suspect]
     Indication: VULVOVAGINAL DRYNESS
     Dosage: UNK
     Dates: start: 20050111, end: 200805

REACTIONS (6)
  - Basal ganglia infarction [Unknown]
  - Arthritis [Unknown]
  - Anxiety [Unknown]
  - Colitis microscopic [Unknown]
  - Off label use [Unknown]
  - Herpes simplex [Unknown]
